FAERS Safety Report 24391440 (Version 1)
Quarter: 2024Q4

REPORT INFORMATION
  Report Type: Spontaneous
  Country: US (occurrence: US)
  Receive Date: 20241003
  Receipt Date: 20241003
  Transmission Date: 20250115
  Serious: Yes (Life-Threatening, Hospitalization)
  Sender: MYLAN
  Company Number: US-MYLANLABS-2024M1088123

PATIENT
  Age: 62 Year
  Sex: Male

DRUGS (8)
  1. METFORMIN [Suspect]
     Active Substance: METFORMIN HYDROCHLORIDE
     Indication: Diabetes mellitus
     Dosage: UNK
     Route: 065
  2. NOREPINEPHRINE [Suspect]
     Active Substance: NOREPINEPHRINE\NOREPINEPHRINE BITARTRATE
     Indication: Distributive shock
     Dosage: 1 MICROGRAM/KILOGRAM, QMINUTE
     Route: 065
  3. NOREPINEPHRINE [Suspect]
     Active Substance: NOREPINEPHRINE\NOREPINEPHRINE BITARTRATE
     Dosage: UNK (DOSE REDUCED)
     Route: 065
  4. EPINEPHRINE [Suspect]
     Active Substance: EPINEPHRINE
     Indication: Distributive shock
     Dosage: 0.2 MICROGRAM/KILOGRAM, QMINUTE
     Route: 065
  5. EPINEPHRINE [Suspect]
     Active Substance: EPINEPHRINE
     Dosage: UNK (DOSE REDUCED)
     Route: 065
  6. VASOPRESSIN [Suspect]
     Active Substance: VASOPRESSIN
     Indication: Distributive shock
     Dosage: 0.03 INTERNATIONAL UNIT, QMINUTE
     Route: 065
  7. ANGIOTENSIN II [Suspect]
     Active Substance: ANGIOTENSIN II
     Indication: Distributive shock
     Dosage: 65 NANOGRAM PER KILOGRAM, QMINUTE
     Route: 065
  8. ANGIOTENSIN II [Suspect]
     Active Substance: ANGIOTENSIN II
     Dosage: UNK (DOSE REDUCED)
     Route: 065

REACTIONS (4)
  - Lactic acidosis [Recovering/Resolving]
  - Respiratory failure [Recovering/Resolving]
  - Distributive shock [Recovering/Resolving]
  - Drug ineffective [Unknown]
